FAERS Safety Report 4880303-7 (Version None)
Quarter: 2006Q1

REPORT INFORMATION
  Report Type: 
  Country: None (occurrence: None)
  Receive Date: 20060113
  Receipt Date: 20060103
  Transmission Date: 20060701
  Serious: Yes (Death)
  Sender: FDA-Public Use
  Company Number: GB-ROCHE-431004

PATIENT
  Age: 67 Year
  Sex: Female
  Weight: 57 kg

DRUGS (6)
  1. XELODA [Suspect]
     Indication: COLON CANCER
     Route: 048
     Dates: start: 20051013
  2. FERROUS SULFATE TAB [Concomitant]
     Route: 065
  3. THYROXINE [Concomitant]
     Route: 065
  4. LANSOPRAZOLE [Concomitant]
     Route: 065
  5. CODEINE [Concomitant]
     Route: 065
  6. DOMPERIDONE [Concomitant]
     Route: 065

REACTIONS (1)
  - CLOSTRIDIUM COLITIS [None]
